FAERS Safety Report 7052273-7 (Version None)
Quarter: 2010Q4

REPORT INFORMATION
  Report Type: 
  Country: None (occurrence: None)
  Receive Date: 20101018
  Receipt Date: 20101018
  Transmission Date: 20110411
  Serious: No
  Sender: FDA-Public Use
  Company Number: None

PATIENT
  Age: 65 Year
  Sex: Female
  Weight: 78.4723 kg

DRUGS (1)
  1. LISINOPRIL [Suspect]
     Indication: HYPERTENSION
     Dosage: ONE DAILY PO
     Route: 048
     Dates: start: 20100427, end: 20101011

REACTIONS (4)
  - CONSTIPATION [None]
  - COUGH [None]
  - POLLAKIURIA [None]
  - SOMNOLENCE [None]
